FAERS Safety Report 5692889-3 (Version None)
Quarter: 2008Q2

REPORT INFORMATION
  Report Type: 
  Country: None (occurrence: None)
  Receive Date: 20080326
  Receipt Date: 20071108
  Transmission Date: 20081010
  Serious: No
  Sender: FDA-Public Use
  Company Number: US-CVT-070163

PATIENT
  Age: 56 Year
  Sex: Female

DRUGS (12)
  1. RANEXA [Suspect]
     Indication: ANGINA PECTORIS
     Dosage: 500 MG, BID, ORAL
     Route: 048
     Dates: start: 20070511, end: 20070821
  2. DIGOXIN [Concomitant]
  3. FUROSEMIDE/00032601/ (FUROSEMIDE) [Concomitant]
  4. LEXAPRO [Concomitant]
  5. AMBIEN [Concomitant]
  6. ISOSORBIDE (ISOSORBIDE) [Concomitant]
  7. METOPROLOL/00376901/ (METOPROLOL) [Concomitant]
  8. LISINOPRIL/00894001/ (LISINOPRIL) [Concomitant]
  9. PLAVIX [Concomitant]
  10. CRESTOR [Concomitant]
  11. FENOBIBRATE (FENOFIBRATE) [Concomitant]
  12. NITROGLYCERIN [Concomitant]

REACTIONS (1)
  - THERAPEUTIC RESPONSE UNEXPECTED [None]
